FAERS Safety Report 4508208-1 (Version None)
Quarter: 2004Q4

REPORT INFORMATION
  Report Type: 
  Country: None (occurrence: None)
  Receive Date: 20041123
  Receipt Date: 20031113
  Transmission Date: 20050328
  Serious: No
  Sender: FDA-Public Use
  Company Number: US-GLAXOSMITHKLINE-A0439664A

PATIENT
  Age: 45 Year
  Sex: Female

DRUGS (1)
  1. WELLBUTRIN [Suspect]
     Indication: MOOD SWINGS
     Dosage: 150MG TWICE PER DAY
     Route: 048
     Dates: start: 20031111, end: 20031113

REACTIONS (5)
  - CAPILLARY DISORDER [None]
  - DIZZINESS [None]
  - DRY MOUTH [None]
  - DYSPNOEA [None]
  - MENTAL STATUS CHANGES [None]
